FAERS Safety Report 21693883 (Version 1)
Quarter: 2022Q4

REPORT INFORMATION
  Report Type: Spontaneous
  Country: FR (occurrence: FR)
  Receive Date: 20221207
  Receipt Date: 20221207
  Transmission Date: 20230113
  Serious: Yes (Hospitalization)
  Sender: FDA-Public Use
  Company Number: None

PATIENT
  Age: 70 Year
  Sex: Male
  Weight: 66 kg

DRUGS (11)
  1. CARBOPLATIN [Suspect]
     Active Substance: CARBOPLATIN
     Indication: Lung adenocarcinoma
     Dosage: 140 MILLIGRAM (C1 : J1 J8)
     Route: 042
     Dates: start: 20220825
  2. PACLITAXEL [Suspect]
     Active Substance: PACLITAXEL
     Indication: Lung adenocarcinoma
     Dosage: 138 MILLIGRAM (C1 : J1 J8)
     Route: 042
     Dates: start: 20220825
  3. GEMCITABINE [Suspect]
     Active Substance: GEMCITABINE
     Indication: Lung adenocarcinoma
     Dosage: 1800 MILLIGRAM (C1 : J1 J8 J15)
     Route: 042
     Dates: start: 20220602, end: 202206
  4. GEMCITABINE [Suspect]
     Active Substance: GEMCITABINE
     Dosage: 1500 MILLIGRAM (C2 : J1 J8 J15)
     Route: 042
     Dates: start: 20220630, end: 202207
  5. GEMCITABINE [Suspect]
     Active Substance: GEMCITABINE
     Dosage: 1500 MILLIGRAM (C3 : J1 J8 J15)
     Route: 042
     Dates: start: 20220728, end: 202208
  6. BISOPROLOL FUMARATE\HYDROCHLOROTHIAZIDE [Concomitant]
     Active Substance: BISOPROLOL FUMARATE\HYDROCHLOROTHIAZIDE
     Indication: Hypertension
     Dosage: 1 DOSAGE FORM, QD
     Route: 048
  7. EZETIMIBE\ROSUVASTATIN [Concomitant]
     Active Substance: EZETIMIBE\ROSUVASTATIN
     Indication: Hypercholesterolaemia
     Dosage: 1 DOSAGE FORM, QD
     Route: 048
  8. CLOPIDOGREL HYDROCHLORIDE [Concomitant]
     Active Substance: CLOPIDOGREL HYDROCHLORIDE
     Indication: Platelet aggregation inhibition
     Dosage: 75 MILLIGRAM, QD
     Route: 048
  9. LANSOPRAZOLE [Concomitant]
     Active Substance: LANSOPRAZOLE
     Indication: Prophylaxis against gastrointestinal ulcer
     Dosage: 15 MILLIGRAM, QD
     Route: 048
  10. LOVENOX [Concomitant]
     Active Substance: ENOXAPARIN SODIUM
     Indication: Thrombosis prophylaxis
     Dosage: 4000 INTERNATIONAL UNIT, QD (ANTI-XA/0,4 ML)
     Route: 058
  11. AMLODIPINE [Concomitant]
     Active Substance: AMLODIPINE BESYLATE
     Indication: Hypertension
     Dosage: 10 MILLIGRAM, QD
     Route: 048

REACTIONS (1)
  - Haemolytic uraemic syndrome [Not Recovered/Not Resolved]

NARRATIVE: CASE EVENT DATE: 20220901
